FAERS Safety Report 9222036 (Version 1)
Quarter: 2013Q2

REPORT INFORMATION
  Report Type: Spontaneous
  Country: US (occurrence: US)
  Receive Date: 20130410
  Receipt Date: 20130410
  Transmission Date: 20140414
  Serious: No
  Sender: FDA-Public Use
  Company Number: US-PFIZER INC-2013108403

PATIENT
  Age: 70 Year
  Sex: Male
  Weight: 104 kg

DRUGS (7)
  1. SUTENT [Suspect]
     Indication: RENAL CELL CARCINOMA
     Dosage: 50 MG, FOR 4 WEEKS AND THEN 2 WEEKS OFF THE THERAPY
     Dates: start: 201107
  2. SUTENT [Suspect]
     Dosage: 37.5 MG, CYCLIC
     Dates: end: 201212
  3. MODURETIC [Concomitant]
     Indication: PROPHYLAXIS
     Dosage: UNK,ALTERNATE DAY
  4. ALLOPURINOL [Concomitant]
     Indication: PROPHYLAXIS
     Dosage: 100 MG, 1X/DAY
  5. LANTUS [Concomitant]
     Indication: DIABETES MELLITUS
     Dosage: 60 IU, 2X/DAY
  6. GLYNASE [Concomitant]
     Indication: DIABETES MELLITUS
     Dosage: 06 MG, 2X/DAY
  7. SIMVASTATIN [Concomitant]
     Indication: BLOOD CHOLESTEROL INCREASED
     Dosage: 40 MG, 1X/DAY

REACTIONS (3)
  - Hypothyroidism [Unknown]
  - Vitamin D decreased [Unknown]
  - Blood potassium decreased [Unknown]
